FAERS Safety Report 5450680-7 (Version None)
Quarter: 2007Q3

REPORT INFORMATION
  Report Type: 
  Country: None (occurrence: None)
  Receive Date: 20070910
  Receipt Date: 20070904
  Transmission Date: 20080115
  Serious: Yes (Other)
  Sender: FDA-Public Use
  Company Number: 2000-07-0571

PATIENT
  Age: 47 Year
  Sex: Female

DRUGS (2)
  1. REBETOL [Suspect]
     Indication: HEPATITIS C
     Dosage: ; PO
     Route: 048
  2. INTRON A [Suspect]
     Indication: HEPATITIS C
     Dosage: ; QD; SC, ; TIW; SC
     Route: 058

REACTIONS (9)
  - ALOPECIA [None]
  - ASTHENIA [None]
  - DEHYDRATION [None]
  - HEADACHE [None]
  - MALAISE [None]
  - ORAL INTAKE REDUCED [None]
  - PULMONARY SARCOIDOSIS [None]
  - VOMITING [None]
  - WEIGHT DECREASED [None]
